FAERS Safety Report 9867300 (Version 2)
Quarter: 2014Q1

REPORT INFORMATION
  Report Type: Report from Study
  Country: ES (occurrence: ES)
  Receive Date: 20140204
  Receipt Date: 20140218
  Transmission Date: 20141002
  Serious: Yes (Death, Hospitalization, Other)
  Sender: FDA-Public Use
  Company Number: ES-JNJFOC-20140119363

PATIENT
  Age: 68 Year
  Sex: Male
  Weight: 72 kg

DRUGS (8)
  1. STELARA [Suspect]
     Indication: PSORIASIS
     Route: 058
     Dates: start: 20130328, end: 20131220
  2. ALDOCUMAR [Concomitant]
     Route: 048
  3. LANSOPRAZOLE [Concomitant]
     Route: 048
  4. ALLOPURINOL [Concomitant]
     Route: 048
  5. METOPROLOL [Concomitant]
     Route: 048
  6. SIMVASTATINE [Concomitant]
     Route: 048
  7. BILASTINE [Concomitant]
     Route: 048
  8. TIOTROPIUM BROMIDE [Concomitant]
     Route: 048

REACTIONS (3)
  - Cardiac failure [Fatal]
  - Immunodeficiency [Unknown]
  - Urinary tract infection [Not Recovered/Not Resolved]
